FAERS Safety Report 21453574 (Version 2)
Quarter: 2022Q4

REPORT INFORMATION
  Report Type: Report from Study
  Country: US (occurrence: US)
  Receive Date: 20221013
  Receipt Date: 20221018
  Transmission Date: 20230112
  Serious: No
  Sender: FDA-Public Use
  Company Number: US-NOVARTISTESTPH-NVSC2022US229959

PATIENT
  Age: 44 Year
  Sex: Female

DRUGS (1)
  1. KESIMPTA [Suspect]
     Active Substance: OFATUMUMAB
     Indication: Relapsing multiple sclerosis
     Dosage: 20 MG, QMO
     Route: 058
     Dates: start: 20220824

REACTIONS (9)
  - Yawning [Unknown]
  - Fatigue [Unknown]
  - Sluggishness [Unknown]
  - Cognitive disorder [Unknown]
  - Temperature intolerance [Unknown]
  - Seasonal affective disorder [Unknown]
  - Anger [Unknown]
  - Depression [Unknown]
  - Drug ineffective [Unknown]

NARRATIVE: CASE EVENT DATE: 20220912
